FAERS Safety Report 9688061 (Version 1)
Quarter: 2013Q4

REPORT INFORMATION
  Report Type: Spontaneous
  Country: IT (occurrence: None)
  Receive Date: 20131112
  Receipt Date: 20131112
  Transmission Date: 20140711
  Serious: Yes (Other)
  Sender: FDA-Public Use
  Company Number: SYM-2013-12482

PATIENT
  Sex: 0

DRUGS (4)
  1. FLUOROURACIL (FLUOROURACIL) (FLUOROURACIL) [Suspect]
     Indication: BILE DUCT CANCER
     Route: 042
  2. OXALIPLATIN (OXALPLATIN) (SOLUTION FOR INFUSION )(OXAPLATIN) [Suspect]
     Indication: BILE DUCT CANCER
     Route: 042
  3. FOLINIC ACID (FOLINIC ACID) (SOLUTION FOR INFUSION)(FOLINIC ACID) [Suspect]
     Indication: BILE DUCT CANCER
     Route: 042
  4. ANTIEMETICS AND ANTINAUSEANTS(ANTIEMETICS AND ANTINAUSEANTS) [Concomitant]

REACTIONS (1)
  - Stomatitis [None]
